FAERS Safety Report 5316042-8 (Version None)
Quarter: 2007Q2

REPORT INFORMATION
  Report Type: 
  Country: None (occurrence: None)
  Receive Date: 20070503
  Receipt Date: 20070326
  Transmission Date: 20071010
  Serious: Yes (Other)
  Sender: FDA-Public Use
  Company Number: US-ROCHE-489597

PATIENT
  Sex: Female

DRUGS (3)
  1. KLONOPIN [Suspect]
     Route: 048
     Dates: start: 20060301
  2. KLONOPIN [Suspect]
     Route: 048
  3. UNSPECIFIED MEDICATIONS [Concomitant]
     Dosage: REPORTED AS 3 OR 4 OTHER MEDICATIONS

REACTIONS (1)
  - ABORTION SPONTANEOUS [None]
